FAERS Safety Report 4543155-0 (Version None)
Quarter: 2004Q4

REPORT INFORMATION
  Report Type: 
  Country: None (occurrence: None)
  Receive Date: 20041229
  Receipt Date: 20041206
  Transmission Date: 20050328
  Serious: Yes (Death)
  Sender: FDA-Public Use
  Company Number: 2004AP06308

PATIENT
  Age: 36 Year
  Sex: Male

DRUGS (1)
  1. MEROPEN [Suspect]
     Dates: start: 20040428

REACTIONS (1)
  - TOXIC EPIDERMAL NECROLYSIS [None]
